FAERS Safety Report 19867389 (Version 2)
Quarter: 2021Q4

REPORT INFORMATION
  Report Type: Spontaneous
  Country: US (occurrence: US)
  Receive Date: 20210921
  Receipt Date: 20211012
  Transmission Date: 20220304
  Serious: Yes (Disabling, Other)
  Sender: FDA-Public Use
  Company Number: US-BAUSCH-BL-2021-031277

PATIENT
  Sex: Female

DRUGS (1)
  1. TRIENTINE HYDROCHLORIDE [Suspect]
     Active Substance: TRIENTINE HYDROCHLORIDE
     Indication: Product used for unknown indication
     Route: 065
     Dates: end: 2021

REACTIONS (5)
  - Paralysis [Unknown]
  - Heart rate decreased [Unknown]
  - Loss of consciousness [Unknown]
  - Mineral deficiency [Unknown]
  - Cardiac disorder [Unknown]

NARRATIVE: CASE EVENT DATE: 20210623
